FAERS Safety Report 19650458 (Version 1)
Quarter: 2021Q3

REPORT INFORMATION
  Report Type: Spontaneous
  Country: US (occurrence: US)
  Receive Date: 20210802
  Receipt Date: 20210802
  Transmission Date: 20211014
  Serious: No
  Sender: FDA-Public Use
  Company Number: None

PATIENT
  Age: 60 Year
  Sex: Male

DRUGS (2)
  1. TRAMETINIB [Suspect]
     Active Substance: TRAMETINIB
     Indication: NEOPLASM MALIGNANT
     Dates: start: 20210412, end: 20210525
  2. DABRAFENIB [Suspect]
     Active Substance: DABRAFENIB
     Indication: NEOPLASM MALIGNANT
     Dates: start: 20210412, end: 20210525

REACTIONS (3)
  - Toxicity to various agents [None]
  - Pyrexia [None]
  - Hyponatraemia [None]

NARRATIVE: CASE EVENT DATE: 20210519
